APPROVED DRUG PRODUCT: MAPROTILINE HYDROCHLORIDE
Active Ingredient: MAPROTILINE HYDROCHLORIDE
Strength: 75MG
Dosage Form/Route: TABLET;ORAL
Application: A072285 | Product #003
Applicant: RISING PHARMA HOLDING INC
Approved: Oct 3, 1988 | RLD: No | RS: No | Type: DISCN